FAERS Safety Report 17467963 (Version 4)
Quarter: 2025Q4

REPORT INFORMATION
  Report Type: Spontaneous
  Country: EU (occurrence: EU)
  Receive Date: 20200227
  Receipt Date: 20251022
  Transmission Date: 20260118
  Serious: Yes (Life-Threatening, Other)
  Sender: SANOFI AVENTIS
  Company Number: EU-MLMSERVICE-20200214-2164900-1

PATIENT
  Age: 69 Year
  Sex: Female
  Weight: 50 kg

DRUGS (6)
  1. DOCETAXEL [Suspect]
     Active Substance: DOCETAXEL
     Indication: Metastases to lung
     Dosage: 20% DOSE REDUCTION
     Dates: start: 2017, end: 2017
  2. DOCETAXEL [Suspect]
     Active Substance: DOCETAXEL
     Dosage: DOSE WAS FURTHER REDUCED TO 60%
     Dates: start: 20171011, end: 2017
  3. DOCETAXEL [Suspect]
     Active Substance: DOCETAXEL
     Dosage: DAY 8
     Dates: start: 20171011, end: 2017
  4. GEMCITABINE HYDROCHLORIDE [Suspect]
     Active Substance: GEMCITABINE HYDROCHLORIDE
     Indication: Metastases to lung
     Dosage: 20% DOSE REDUCTION, DAYS 1-8
     Dates: start: 20171011, end: 2017
  5. GEMCITABINE HYDROCHLORIDE [Suspect]
     Active Substance: GEMCITABINE HYDROCHLORIDE
     Dosage: DOSE WAS FURTHER REDUCED TO 60%
  6. HEPARIN [Concomitant]
     Active Substance: HEPARIN SODIUM
     Dosage: UNK

REACTIONS (5)
  - Haematotoxicity [Recovered/Resolved]
  - Neutropenia [Recovered/Resolved]
  - Platelet toxicity [Recovered/Resolved]
  - Thrombocytopenia [Recovered/Resolved]
  - Anaemia [Recovered/Resolved]

NARRATIVE: CASE EVENT DATE: 20171017
